FAERS Safety Report 4998126-7 (Version None)
Quarter: 2006Q2

REPORT INFORMATION
  Report Type: 
  Country: None (occurrence: None)
  Receive Date: 20060510
  Receipt Date: 20050914
  Transmission Date: 20061013
  Serious: Yes (Hospitalization, Other)
  Sender: FDA-Public Use
  Company Number: US-MERCK-0509USA01929

PATIENT
  Age: 57 Year
  Sex: Male
  Weight: 89 kg

DRUGS (8)
  1. VIOXX [Suspect]
     Indication: OSTEOARTHRITIS
     Route: 048
     Dates: start: 20001114, end: 20040501
  2. VIOXX [Suspect]
     Indication: ARTHRALGIA
     Route: 048
     Dates: start: 20001114, end: 20040501
  3. ASPIRIN [Concomitant]
     Route: 065
  4. TYLENOL [Concomitant]
     Route: 065
  5. LANOXIN [Concomitant]
     Route: 065
  6. PREVACID [Concomitant]
     Route: 065
  7. ZESTRIL [Concomitant]
     Route: 065
  8. NIFEDIPINE [Concomitant]
     Route: 065

REACTIONS (15)
  - ABDOMINAL PAIN [None]
  - ADVERSE EVENT [None]
  - ANAEMIA [None]
  - ATRIAL FIBRILLATION [None]
  - CORONARY ARTERY DISEASE [None]
  - HEPATIC LESION [None]
  - LEUKOCYTOSIS [None]
  - LYMPHADENOPATHY [None]
  - MYOCARDIAL INFARCTION [None]
  - NEPHROSCLEROSIS [None]
  - PROTEINURIA [None]
  - RENAL ARTERY STENOSIS [None]
  - RENAL FAILURE CHRONIC [None]
  - SPERMATOCELE [None]
  - VENTRICULAR FIBRILLATION [None]
